FAERS Safety Report 15454415 (Version 1)
Quarter: 2018Q4

REPORT INFORMATION
  Report Type: Spontaneous
  Country: US (occurrence: US)
  Receive Date: 20181002
  Receipt Date: 20181002
  Transmission Date: 20190204
  Serious: No
  Sender: FDA-Public Use
  Company Number: US-TEVA-2018-US-958164

PATIENT
  Sex: Female

DRUGS (5)
  1. DIAZEPAM. [Concomitant]
     Active Substance: DIAZEPAM
     Indication: SLEEP DISORDER
     Dosage: 5.0/ A QUARTER OF TAB
     Route: 048
  2. MELATONIN [Concomitant]
     Active Substance: MELATONIN
     Indication: SLEEP DISORDER
  3. CHAMOMILE [Concomitant]
     Active Substance: CHAMOMILE
     Indication: SLEEP DISORDER
  4. ADVIL PM LIQUID GELS [Concomitant]
     Indication: SLEEP DISORDER
     Route: 065
  5. CLONAZEPAM. [Suspect]
     Active Substance: CLONAZEPAM
     Indication: ANXIETY
     Dosage: 4-5 HOURS
     Route: 048
     Dates: start: 20180820

REACTIONS (4)
  - Drug ineffective [Unknown]
  - Dizziness [Unknown]
  - Condition aggravated [Unknown]
  - Product substitution issue [Unknown]
